FAERS Safety Report 7593128-9 (Version None)
Quarter: 2011Q3

REPORT INFORMATION
  Report Type: 
  Country: None (occurrence: None)
  Receive Date: 20110706
  Receipt Date: 20110624
  Transmission Date: 20111222
  Serious: Yes (Other)
  Sender: FDA-Public Use
  Company Number: US-JNJFOC-20110611566

PATIENT
  Sex: Male
  Weight: 78.93 kg

DRUGS (1)
  1. REMICADE [Suspect]
     Indication: COLITIS ULCERATIVE
     Dosage: DOSAGE UNKNOWN, EVERY 8 TO 10 WEEKS.
     Route: 042
     Dates: start: 20061101

REACTIONS (2)
  - HEMIPARESIS [None]
  - HYPOTENSION [None]
